FAERS Safety Report 5311691-5 (Version None)
Quarter: 2007Q2

REPORT INFORMATION
  Report Type: 
  Country: None (occurrence: None)
  Receive Date: 20070426
  Receipt Date: 20070426
  Transmission Date: 20071010
  Serious: No
  Sender: FDA-Public Use
  Company Number: None

PATIENT
  Age: 73 Year
  Sex: Female

DRUGS (3)
  1. ACYCLOVIR [Suspect]
     Indication: ENCEPHALITIS
     Dosage: 3GM EVERY 6 HOURS
  2. ACYCLOVIR [Suspect]
     Indication: HERPES SIMPLEX
     Dosage: 3GM EVERY 6 HOURS
  3. TICARCILLIN [Concomitant]

REACTIONS (1)
  - RENAL FAILURE [None]
